FAERS Safety Report 22291239 (Version 1)
Quarter: 2023Q2

REPORT INFORMATION
  Report Type: Spontaneous
  Country: CN (occurrence: CN)
  Receive Date: 20230506
  Receipt Date: 20230506
  Transmission Date: 20230722
  Serious: Yes (Other)
  Sender: FDA-Public Use
  Company Number: CN-002147023-NVSC2023CN101722

PATIENT
  Age: 69 Year
  Sex: Male
  Weight: 75 kg

DRUGS (4)
  1. VORICONAZOLE [Suspect]
     Active Substance: VORICONAZOLE
     Indication: Chronic obstructive pulmonary disease
     Dosage: 400 MG, Q12H
     Route: 048
     Dates: start: 20230416
  2. VORICONAZOLE [Suspect]
     Active Substance: VORICONAZOLE
     Indication: Lower respiratory tract infection
     Dosage: 200 MG, BID
     Route: 048
     Dates: start: 20230417, end: 20230418
  3. MEROPENEM [Suspect]
     Active Substance: MEROPENEM
     Indication: Chronic obstructive pulmonary disease
     Dosage: 1 G, Q8H
     Route: 041
     Dates: start: 20230417
  4. MEROPENEM [Suspect]
     Active Substance: MEROPENEM
     Indication: Lower respiratory tract infection
     Dosage: 1 G, TID
     Route: 041
     Dates: end: 20230418

REACTIONS (4)
  - Altered state of consciousness [Unknown]
  - Delirium [Recovering/Resolving]
  - Mental disorder [Unknown]
  - Restlessness [Unknown]

NARRATIVE: CASE EVENT DATE: 20230417
